FAERS Safety Report 10413114 (Version 7)
Quarter: 2015Q3

REPORT INFORMATION
  Report Type: Report from Study
  Country: US (occurrence: US)
  Receive Date: 20140827
  Receipt Date: 20150819
  Transmission Date: 20151125
  Serious: Yes (Other)
  Sender: FDA-Public Use
  Company Number: US-SA-2014SA075258

PATIENT
  Age: 57 Year
  Sex: Female

DRUGS (5)
  1. AUBAGIO [Suspect]
     Active Substance: TERIFLUNOMIDE
     Indication: MULTIPLE SCLEROSIS
     Route: 048
     Dates: start: 20141121
  2. BACTRIM [Concomitant]
     Active Substance: SULFAMETHOXAZOLE\TRIMETHOPRIM
     Indication: MULTIPLE SCLEROSIS
     Dates: start: 20010101
  3. SOLU-MEDROL [Concomitant]
     Active Substance: METHYLPREDNISOLONE SODIUM SUCCINATE
  4. PREDNISONE. [Concomitant]
     Active Substance: PREDNISONE
  5. AUBAGIO [Suspect]
     Active Substance: TERIFLUNOMIDE
     Indication: MULTIPLE SCLEROSIS
     Route: 048
     Dates: start: 20140506

REACTIONS (22)
  - Musculoskeletal pain [Not Recovered/Not Resolved]
  - Balance disorder [Unknown]
  - Anxiety [Unknown]
  - Nerve compression [Unknown]
  - Hemiparesis [Unknown]
  - Spinal pain [Not Recovered/Not Resolved]
  - Seizure [Unknown]
  - Feeling abnormal [Unknown]
  - Insomnia [Unknown]
  - Fatigue [Unknown]
  - Aphasia [Unknown]
  - Spinal column stenosis [Unknown]
  - Neck pain [Not Recovered/Not Resolved]
  - Back pain [Not Recovered/Not Resolved]
  - Tooth loss [Unknown]
  - Feeling abnormal [Recovering/Resolving]
  - Dyspnoea [Unknown]
  - Panic attack [Unknown]
  - Fall [Recovering/Resolving]
  - Muscle spasms [Not Recovered/Not Resolved]
  - Depression [Unknown]
  - Gait disturbance [Unknown]

NARRATIVE: CASE EVENT DATE: 201407
